FAERS Safety Report 9375852 (Version 1)
Quarter: 2013Q2

REPORT INFORMATION
  Report Type: Spontaneous
  Country: US (occurrence: US)
  Receive Date: 20130628
  Receipt Date: 20130628
  Transmission Date: 20140414
  Serious: No
  Sender: FDA-Public Use
  Company Number: US-009507513-1306USA013556

PATIENT
  Sex: Female

DRUGS (9)
  1. PEGINTRON [Suspect]
     Dosage: 80 MICROGRAM, QW
     Route: 058
  2. VICTRELIS [Suspect]
     Route: 048
  3. REBETOL [Suspect]
     Route: 048
  4. METFORMIN [Concomitant]
  5. QUINAPRIL HYDROCHLORIDE [Concomitant]
  6. GLYBURIDE [Concomitant]
  7. HYDROCHLOROTHIAZIDE [Concomitant]
  8. ASPIR LOW [Concomitant]
  9. BYETTA [Concomitant]

REACTIONS (6)
  - Influenza like illness [Unknown]
  - Fatigue [Unknown]
  - Nausea [Unknown]
  - Dizziness [Unknown]
  - Balance disorder [Unknown]
  - Oropharyngeal plaque [Unknown]
